FAERS Safety Report 18982160 (Version 1)
Quarter: 2021Q1

REPORT INFORMATION
  Report Type: Spontaneous
  Country: US (occurrence: US)
  Receive Date: 20210308
  Receipt Date: 20210308
  Transmission Date: 20210420
  Serious: Yes (Hospitalization, Other)
  Sender: FDA-Public Use
  Company Number: US-ELI_LILLY_AND_COMPANY-US202102013396

PATIENT
  Sex: Male

DRUGS (8)
  1. HUMALOG [Suspect]
     Active Substance: INSULIN LISPRO
     Indication: TYPE 1 DIABETES MELLITUS
     Dosage: 20 U, UNKNOWN
     Route: 058
  2. HUMALOG [Suspect]
     Active Substance: INSULIN LISPRO
     Dosage: 16 U, DAILY
     Route: 058
  3. LANTUS [Suspect]
     Active Substance: INSULIN GLARGINE
     Indication: PRODUCT USED FOR UNKNOWN INDICATION
     Dosage: 26 U, BED TIME
     Route: 065
  4. HUMALOG [Suspect]
     Active Substance: INSULIN LISPRO
     Indication: TYPE 1 DIABETES MELLITUS
     Dosage: 20 U, UNKNOWN
     Route: 058
  5. HUMALOG [Suspect]
     Active Substance: INSULIN LISPRO
     Dosage: 16 U, DAILY
     Route: 058
  6. HUMALOG [Suspect]
     Active Substance: INSULIN LISPRO
     Dosage: 16 U, DAILY
     Route: 058
  7. LANTUS [Suspect]
     Active Substance: INSULIN GLARGINE
     Dosage: 26 U, AT 3 PM
     Route: 065
  8. HUMALOG [Suspect]
     Active Substance: INSULIN LISPRO
     Dosage: 16 U, DAILY
     Route: 058

REACTIONS (13)
  - Blood glucose decreased [Unknown]
  - Injection site induration [Unknown]
  - Shock hypoglycaemic [Unknown]
  - Vomiting [Unknown]
  - Incorrect dose administered [Unknown]
  - Diabetes mellitus inadequate control [Unknown]
  - Product administered at inappropriate site [Unknown]
  - Blindness transient [Recovered/Resolved]
  - Blood glucose increased [Unknown]
  - Facial discomfort [Unknown]
  - Seizure [Recovered/Resolved]
  - Unresponsive to stimuli [Unknown]
  - Hyperhidrosis [Unknown]
